APPROVED DRUG PRODUCT: CYCLAFEM 1/35
Active Ingredient: ETHINYL ESTRADIOL; NORETHINDRONE
Strength: 0.035MG;1MG
Dosage Form/Route: TABLET;ORAL-28
Application: A076337 | Product #001
Applicant: PH HEALTH LTD
Approved: Nov 12, 2010 | RLD: No | RS: No | Type: DISCN